FAERS Safety Report 16819887 (Version 3)
Quarter: 2019Q4

REPORT INFORMATION
  Report Type: Report from Study
  Country: None (occurrence: US)
  Receive Date: 20190917
  Receipt Date: 20191231
  Transmission Date: 20200122
  Serious: Yes (Other)
  Sender: FDA-Public Use
  Company Number: US-ABBVIE-19K-163-2917925-00

PATIENT
  Age: 20 Year
  Sex: Female

DRUGS (1)
  1. HUMIRA [Suspect]
     Active Substance: ADALIMUMAB
     Indication: CROHN^S DISEASE
     Dosage: CITRATE FREE
     Route: 058
     Dates: start: 20190123

REACTIONS (4)
  - Crohn^s disease [Unknown]
  - Escherichia urinary tract infection [Recovered/Resolved]
  - Escherichia urinary tract infection [Recovering/Resolving]
  - Intestinal fistula [Recovered/Resolved]

NARRATIVE: CASE EVENT DATE: 201901
